FAERS Safety Report 10137791 (Version 1)
Quarter: 2014Q2

REPORT INFORMATION
  Report Type: Spontaneous
  Country: US (occurrence: None)
  Receive Date: 20140428
  Receipt Date: 20140428
  Transmission Date: 20141212
  Serious: No
  Sender: FDA-Public Use
  Company Number: None

PATIENT
  Age: 20 Year
  Sex: Male
  Weight: 74.84 kg

DRUGS (3)
  1. LAMOTRIGINE [Suspect]
     Indication: AFFECTIVE DISORDER
     Route: 048
     Dates: start: 201101, end: 201103
  2. ADDERALL XR 25 MG [Concomitant]
  3. ADDERALL 10 MG [Concomitant]

REACTIONS (3)
  - Product substitution issue [None]
  - Weight increased [None]
  - Disturbance in attention [None]
